FAERS Safety Report 9316358 (Version 1)
Quarter: 2013Q2

REPORT INFORMATION
  Report Type: Spontaneous
  Country: US (occurrence: None)
  Receive Date: 20130528
  Receipt Date: 20130528
  Transmission Date: 20140414
  Serious: No
  Sender: FDA-Public Use
  Company Number: None

PATIENT
  Age: 57 Year
  Sex: Female
  Weight: 67.13 kg

DRUGS (1)
  1. PROLIA [Suspect]
     Indication: BREAST CANCER
     Dosage: INJECTION 1X EV. 6 MONTHS

REACTIONS (2)
  - Jaw disorder [None]
  - Constipation [None]
